FAERS Safety Report 10932117 (Version 1)
Quarter: 2015Q1

REPORT INFORMATION
  Report Type: Report from Study
  Country: MX (occurrence: MX)
  Receive Date: 20150319
  Receipt Date: 20150319
  Transmission Date: 20150721
  Serious: Yes (Death)
  Sender: FDA-Public Use
  Company Number: MX-ABBVIE-15K-107-1363052-00

PATIENT
  Age: 65 Year
  Sex: Male
  Weight: 72 kg

DRUGS (1)
  1. HUMIRA [Suspect]
     Active Substance: ADALIMUMAB
     Indication: CROHN^S DISEASE
     Dosage: INITIATION DOSE
     Route: 058
     Dates: start: 20150107, end: 20150107

REACTIONS (1)
  - Crohn^s disease [Fatal]

NARRATIVE: CASE EVENT DATE: 20150311
